FAERS Safety Report 4983531-5 (Version None)
Quarter: 2006Q2

REPORT INFORMATION
  Report Type: 
  Country: None (occurrence: None)
  Receive Date: 20060426
  Receipt Date: 20060419
  Transmission Date: 20061013
  Serious: Yes (Other)
  Sender: FDA-Public Use
  Company Number: CA-BRISTOL-MYERS SQUIBB COMPANY-13351598

PATIENT
  Age: 69 Year
  Sex: Female

DRUGS (8)
  1. TEQUIN [Suspect]
     Indication: BRONCHITIS
  2. METFORMIN HYDROCHLORIDE [Concomitant]
  3. GLYBURIDE [Concomitant]
  4. ALTACE [Concomitant]
  5. LASIX [Concomitant]
  6. NITROGLYCERIN [Concomitant]
  7. LOVASTATIN [Concomitant]
  8. ACEBUTOLOL [Concomitant]

REACTIONS (1)
  - BLOOD GLUCOSE INCREASED [None]
